FAERS Safety Report 20736339 (Version 2)
Quarter: 2022Q2

REPORT INFORMATION
  Report Type: Report from Study
  Country: DE (occurrence: DE)
  Receive Date: 20220421
  Receipt Date: 20220511
  Transmission Date: 20220721
  Serious: Yes (Other)
  Sender: FDA-Public Use
  Company Number: DE-JNJFOC-20200312119

PATIENT
  Age: 17 Year
  Sex: Male
  Weight: 90 kg

DRUGS (6)
  1. METHOTREXATE [Suspect]
     Active Substance: METHOTREXATE
     Indication: Juvenile idiopathic arthritis
     Dosage: 25 MILLIGRAM, QW/ START DATE: 24-FEB-2020
     Route: 065
  2. SIMPONI [Suspect]
     Active Substance: GOLIMUMAB
     Indication: Juvenile idiopathic arthritis
     Dosage: 50 MILLIGRAM, 4XW
     Route: 058
     Dates: start: 20170615, end: 20180801
  3. SIMPONI [Suspect]
     Active Substance: GOLIMUMAB
     Dosage: 50 MILLIGRAM, 4XW/14-AUG-2019
     Route: 058
     Dates: end: 20200816
  4. METHYLPREDNISOLONE [Concomitant]
     Active Substance: METHYLPREDNISOLONE
     Dosage: UNK
     Route: 065
     Dates: end: 201908
  5. IBUPROFEN [Concomitant]
     Active Substance: IBUPROFEN
     Dosage: 400 MILLIGRAM
     Route: 065
     Dates: end: 201908
  6. NAPROXEN [Concomitant]
     Active Substance: NAPROXEN
     Dosage: UNK
     Route: 065
     Dates: end: 201908

REACTIONS (5)
  - Drug ineffective [Unknown]
  - Dermatitis atopic [Recovering/Resolving]
  - Juvenile idiopathic arthritis [Not Recovered/Not Resolved]
  - Off label use [Unknown]
  - Product use issue [Unknown]

NARRATIVE: CASE EVENT DATE: 20180801
